FAERS Safety Report 9848387 (Version 1)
Quarter: 2013Q4

REPORT INFORMATION
  Report Type: Spontaneous
  Country: US (occurrence: None)
  Receive Date: 20131226
  Receipt Date: 20131226
  Transmission Date: 20140711
  Serious: Yes (Other)
  Sender: FDA-Public Use
  Company Number: PHEH2013US019018

PATIENT
  Age: 36 Year
  Sex: Male

DRUGS (3)
  1. ARCAPTA (INDACATEROL) UNKNOWN [Suspect]
  2. DONEPEZIL (DONEEPEZIL) [Concomitant]
  3. COMBIVENT (IPRATROPIUM BROMIDE, SALBUTAMOL SULFATE)? [Concomitant]

REACTIONS (1)
  - Medication error [None]
